FAERS Safety Report 14074173 (Version 3)
Quarter: 2017Q4

REPORT INFORMATION
  Report Type: Spontaneous
  Country: US (occurrence: US)
  Receive Date: 20171011
  Receipt Date: 20171205
  Transmission Date: 20180321
  Serious: Yes (Hospitalization, Other)
  Sender: FDA-Public Use
  Company Number: US-JAZZ-2017-US-013034

PATIENT
  Age: 57 Year
  Sex: Female

DRUGS (4)
  1. KETAMINE [Suspect]
     Active Substance: KETAMINE
     Indication: PSYCHOTIC DISORDER
  2. XYREM [Suspect]
     Active Substance: SODIUM OXYBATE
     Indication: PRODUCT USED FOR UNKNOWN INDICATION
     Dosage: UNK
     Route: 048
  3. BREXPIPRAZOLE [Concomitant]
     Active Substance: BREXPIPRAZOLE
     Indication: PRODUCT USED FOR UNKNOWN INDICATION
  4. TOPAMAX [Concomitant]
     Active Substance: TOPIRAMATE
     Indication: PRODUCT USED FOR UNKNOWN INDICATION

REACTIONS (18)
  - Respiratory depression [Recovered/Resolved]
  - Delusion [Unknown]
  - Myoclonic epilepsy [Unknown]
  - Intentional overdose [Unknown]
  - Hypertension [Recovered/Resolved]
  - Somnolence [Unknown]
  - Depressed level of consciousness [Unknown]
  - Psychotic disorder [Unknown]
  - Syncope [Recovered/Resolved]
  - Oropharyngeal pain [Unknown]
  - Sleep disorder [Unknown]
  - Hallucination [Unknown]
  - Electrocardiogram abnormal [Recovered/Resolved]
  - Delirium [Unknown]
  - Unevaluable event [Recovered/Resolved]
  - Grunting [Unknown]
  - Incontinence [Unknown]
  - Diarrhoea [Unknown]

NARRATIVE: CASE EVENT DATE: 20170817
